FAERS Safety Report 7437502-X (Version None)
Quarter: 2011Q2

REPORT INFORMATION
  Report Type: 
  Country: None (occurrence: None)
  Receive Date: 20110426
  Receipt Date: 20110420
  Transmission Date: 20111010
  Serious: Yes (Death, Other)
  Sender: FDA-Public Use
  Company Number: PHHY2011JP34177

PATIENT
  Age: 60 Year
  Sex: Male

DRUGS (3)
  1. AZATHIOPRINE [Concomitant]
     Dosage: 50 MG, UNK
     Route: 048
  2. METHYLPREDNISOLONE [Concomitant]
     Dosage: 8 MG, UNK
     Route: 048
  3. CYCLOSPORINE [Suspect]
     Indication: RENAL TRANSPLANT
     Dosage: 50 MG DAILY
     Route: 048

REACTIONS (2)
  - MYCOBACTERIUM CHELONEI INFECTION [None]
  - DEATH [None]
